FAERS Safety Report 25784298 (Version 1)
Quarter: 2025Q3

REPORT INFORMATION
  Report Type: Spontaneous
  Country: US (occurrence: US)
  Receive Date: 20250910
  Receipt Date: 20250910
  Transmission Date: 20251021
  Serious: Yes (Hospitalization, Other)
  Sender: NOVITIUM PHARMA
  Company Number: US-NOVITIUMPHARMA-2025USNVP02274

PATIENT
  Age: 79 Year
  Sex: Male

DRUGS (21)
  1. HYDROCORTISONE [Suspect]
     Active Substance: HYDROCORTISONE
     Indication: Adrenocortical steroid therapy
     Dosage: TABLETS
  2. HYDROCORTISONE [Suspect]
     Active Substance: HYDROCORTISONE
     Route: 040
  3. METHOTREXATE [Concomitant]
     Active Substance: METHOTREXATE
     Indication: Hypertension
  4. AMLODIPINE [Concomitant]
     Active Substance: AMLODIPINE BESYLATE
     Indication: Hypertension
  5. LEVOTHYROXINE SODIUM [Concomitant]
     Active Substance: LEVOTHYROXINE SODIUM
     Indication: Hypothyroidism
  6. CLOPIDOGREL [Concomitant]
     Active Substance: CLOPIDOGREL BISULFATE
     Indication: Benign prostatic hyperplasia
  7. ASPIRIN [Concomitant]
     Active Substance: ASPIRIN
     Indication: Benign prostatic hyperplasia
  8. Isosorbide-mononitrate [Concomitant]
     Indication: Benign prostatic hyperplasia
  9. ROSUVASTATIN [Concomitant]
     Active Substance: ROSUVASTATIN
     Indication: Benign prostatic hyperplasia
  10. ALFUZOSIN [Concomitant]
     Active Substance: ALFUZOSIN
     Indication: Benign prostatic hyperplasia
  11. PANTOPRAZOLE [Concomitant]
     Active Substance: PANTOPRAZOLE
     Indication: Generalised anxiety disorder
  12. ALPRAZOLAM [Concomitant]
     Active Substance: ALPRAZOLAM
     Indication: Generalised anxiety disorder
  13. GABAPENTIN [Concomitant]
     Active Substance: GABAPENTIN
  14. ACETAMINOPHEN\HYDROCODONE BITARTRATE [Concomitant]
     Active Substance: ACETAMINOPHEN\HYDROCODONE BITARTRATE
  15. ETOMIDATE [Concomitant]
     Active Substance: ETOMIDATE
     Indication: Endotracheal intubation
     Route: 042
  16. ROCURONIUM [Concomitant]
     Active Substance: ROCURONIUM BROMIDE
  17. PROPOFOL [Concomitant]
     Active Substance: PROPOFOL
     Indication: Sedation
  18. FENTANYL [Concomitant]
     Active Substance: FENTANYL
     Indication: Analgesic therapy
  19. HEPARIN [Concomitant]
     Active Substance: HEPARIN SODIUM
  20. EPINEPHRINE [Concomitant]
     Active Substance: EPINEPHRINE
  21. APIXABAN [Concomitant]
     Active Substance: APIXABAN

REACTIONS (4)
  - Pneumonia [Unknown]
  - Sepsis [Unknown]
  - Adrenal suppression [Unknown]
  - Acute respiratory failure [Unknown]
